FAERS Safety Report 12728440 (Version 1)
Quarter: 2016Q3

REPORT INFORMATION
  Report Type: Spontaneous
  Country: US (occurrence: US)
  Receive Date: 20160907
  Receipt Date: 20160907
  Transmission Date: 20161109
  Serious: Yes (Other)
  Sender: FDA-Public Use
  Company Number: None

PATIENT
  Age: 45 Year
  Sex: Female
  Weight: 90 kg

DRUGS (7)
  1. RESTORA RX [Suspect]
     Active Substance: DIETARY SUPPLEMENT
     Indication: URINARY TRACT DISORDER
  2. LATEX [Concomitant]
     Active Substance: NATURAL LATEX RUBBER
  3. POLLEN [Concomitant]
     Active Substance: BEE POLLEN
  4. RESTORA RX [Suspect]
     Active Substance: DIETARY SUPPLEMENT
     Indication: GASTROINTESTINAL DISORDER
  5. ALMONDS [Concomitant]
  6. FRUITS [Concomitant]
  7. CLARITHROMYCIN. [Concomitant]
     Active Substance: CLARITHROMYCIN

REACTIONS (1)
  - Anaemia [None]

NARRATIVE: CASE EVENT DATE: 20160903
